FAERS Safety Report 9201654 (Version 10)
Quarter: 2015Q3

REPORT INFORMATION
  Report Type: Report from Study
  Country: CA (occurrence: CA)
  Receive Date: 20130401
  Receipt Date: 20150706
  Transmission Date: 20151125
  Serious: Yes (Other)
  Sender: FDA-Public Use
  Company Number: PHHY2012CA116951

PATIENT
  Age: 34 Year
  Sex: Male

DRUGS (3)
  1. TASIGNA [Suspect]
     Active Substance: NILOTINIB
     Dosage: 450 MG, QD (300 MG IN MORNING AND 150 MG IN EVENING)
     Route: 048
  2. TASIGNA [Suspect]
     Active Substance: NILOTINIB
     Indication: CHRONIC MYELOID LEUKAEMIA
     Dosage: 400 MG, BID
     Route: 048
     Dates: start: 20120301
  3. TASIGNA [Suspect]
     Active Substance: NILOTINIB
     Dosage: 300 MG, BID
     Route: 048
     Dates: start: 201203

REACTIONS (24)
  - Rhinorrhoea [Unknown]
  - Cold sweat [Unknown]
  - Skin disorder [Unknown]
  - Nasal congestion [Unknown]
  - Headache [Unknown]
  - Fatigue [Unknown]
  - Cough [Not Recovered/Not Resolved]
  - Platelet count decreased [Unknown]
  - Pyrexia [Unknown]
  - Blood cholesterol abnormal [Unknown]
  - Blood pressure increased [Unknown]
  - Neck pain [Unknown]
  - Tympanic membrane perforation [Unknown]
  - Chills [Unknown]
  - Eyelid skin dryness [Unknown]
  - Bronchitis [Unknown]
  - Blood pressure abnormal [Unknown]
  - Eczema [Unknown]
  - Inappropriate schedule of drug administration [Unknown]
  - Ear infection [Unknown]
  - Ear pain [Unknown]
  - Productive cough [Unknown]
  - Weight decreased [Unknown]
  - Nasopharyngitis [Unknown]

NARRATIVE: CASE EVENT DATE: 201203
